FAERS Safety Report 25788497 (Version 1)
Quarter: 2025Q3

REPORT INFORMATION
  Report Type: Spontaneous
  Country: US (occurrence: US)
  Receive Date: 20250910
  Receipt Date: 20250910
  Transmission Date: 20251020
  Serious: No
  Sender: ELI LILLY AND COMPANY
  Company Number: US-ELI_LILLY_AND_COMPANY-US202509002697

PATIENT
  Age: 47 Year

DRUGS (4)
  1. HUMALOG [Suspect]
     Active Substance: INSULIN LISPRO
     Indication: Diabetes mellitus
     Route: 058
     Dates: start: 2025
  2. HUMALOG [Suspect]
     Active Substance: INSULIN LISPRO
     Indication: Diabetes mellitus
     Route: 058
     Dates: start: 2025
  3. HUMALOG [Suspect]
     Active Substance: INSULIN LISPRO
     Route: 058
     Dates: start: 202508
  4. HUMALOG [Suspect]
     Active Substance: INSULIN LISPRO
     Route: 058
     Dates: start: 202508

REACTIONS (4)
  - Blood glucose fluctuation [Unknown]
  - Product storage error [Unknown]
  - Accidental underdose [Unknown]
  - Blood glucose decreased [Unknown]

NARRATIVE: CASE EVENT DATE: 20250902
